FAERS Safety Report 12431910 (Version 1)
Quarter: 2016Q2

REPORT INFORMATION
  Report Type: Spontaneous
  Country: US (occurrence: None)
  Receive Date: 20160602
  Receipt Date: 20160602
  Transmission Date: 20160815
  Serious: Yes (Other)
  Sender: FDA-Public Use
  Company Number: None

PATIENT
  Age: 60 Year
  Sex: Female
  Weight: 55.34 kg

DRUGS (4)
  1. VITAMIN C [Concomitant]
     Active Substance: ASCORBIC ACID
  2. VITAMIN B [Concomitant]
     Active Substance: VITAMIN B
  3. LEVOFLOXACIN 750MG, 750 MG [Suspect]
     Active Substance: LEVOFLOXACIN
     Indication: URINARY TRACT INFECTION
     Dosage: 2 CAPSULE(S) IN THE MORNING TAKEN BY MOUTH
     Route: 048
     Dates: start: 20160526, end: 20160527
  4. NATURE-THROID [Concomitant]
     Active Substance: THYROID, PORCINE

REACTIONS (7)
  - Arthralgia [None]
  - Anxiety [None]
  - Pain in extremity [None]
  - Decreased activity [None]
  - Pain [None]
  - Tendon pain [None]
  - Insomnia [None]

NARRATIVE: CASE EVENT DATE: 20160526
